FAERS Safety Report 6282843-5 (Version None)
Quarter: 2009Q3

REPORT INFORMATION
  Report Type: 
  Country: None (occurrence: None)
  Receive Date: 20090715
  Receipt Date: 20090629
  Transmission Date: 20100115
  Serious: Yes (Hospitalization)
  Sender: FDA-Public Use
  Company Number: 20090629CINRY1037

PATIENT
  Age: 38 Year
  Sex: Female

DRUGS (1)
  1. CINRYZE [Suspect]
     Indication: HEREDITARY ANGIOEDEMA
     Dosage: (1500 UNIT, 2 IN 1 WK)

REACTIONS (5)
  - ABDOMINAL SYMPTOM [None]
  - CONDITION AGGRAVATED [None]
  - HEREDITARY ANGIOEDEMA [None]
  - INFLUENZA [None]
  - THERAPEUTIC RESPONSE DECREASED [None]
